FAERS Safety Report 4405300-7 (Version None)
Quarter: 2004Q3

REPORT INFORMATION
  Report Type: 
  Country: None (occurrence: None)
  Receive Date: 20040716
  Receipt Date: 20040701
  Transmission Date: 20050211
  Serious: Yes (Hospitalization)
  Sender: FDA-Public Use
  Company Number: 200406255

PATIENT
  Age: 22 Month
  Weight: 11.3 kg

DRUGS (2)
  1. BOTULINUM TOXIN TYPE A [Suspect]
     Indication: MUSCLE SPASTICITY
     Dosage: 77 UNITSD PRN IM
     Route: 030
     Dates: start: 19990414
  2. BOTULINUM TOXIN TYPE A [Suspect]
     Indication: MUSCLE SPASTICITY
     Dosage: 130 UNITS PRN IM
     Route: 030
     Dates: start: 19990414

REACTIONS (4)
  - CONVULSION [None]
  - FEBRILE CONVULSION [None]
  - RESPIRATORY SYNCYTIAL VIRUS INFECTION [None]
  - VOMITING [None]
